FAERS Safety Report 10224487 (Version 7)
Quarter: 2014Q3

REPORT INFORMATION
  Report Type: Report from Study
  Country: US (occurrence: US)
  Receive Date: 20140609
  Receipt Date: 20140930
  Transmission Date: 20150326
  Serious: Yes (Other)
  Sender: FDA-Public Use
  Company Number: PHEH2014US010306

PATIENT
  Age: 76 Year
  Sex: Male
  Weight: 71.66 kg

DRUGS (11)
  1. AFINITOR [Suspect]
     Active Substance: EVEROLIMUS
     Indication: NEUROENDOCRINE CARCINOMA
     Dosage: 10 MG, QD
     Route: 048
     Dates: start: 20131126, end: 20140513
  2. VITAMIIN C [Concomitant]
     Active Substance: ASCORBIC ACID
  3. AFINITOR [Suspect]
     Active Substance: EVEROLIMUS
     Dosage: 5 MG, QD
     Route: 048
     Dates: start: 20140513
  4. ASPIRIN. [Concomitant]
     Active Substance: ASPIRIN
  5. PROBIOTIC//BIFIDOBACTERIUM LACTIS [Concomitant]
  6. COQ10 [Concomitant]
     Active Substance: UBIDECARENONE
  7. OMEGA 3 [Concomitant]
     Active Substance: OMEGA-3 FATTY ACIDS
  8. NATURAL VITAMIN D [Concomitant]
  9. SANDOSTATIN LAR DEPOT [Suspect]
     Active Substance: OCTREOTIDE ACETATE
     Dosage: UNK UKN, UNK
     Route: 030
     Dates: start: 20130912
  10. SOTALOL. [Concomitant]
     Active Substance: SOTALOL
  11. LEVOTHYROXINE [Concomitant]
     Active Substance: LEVOTHYROXINE
     Dosage: 100 UG, UKN

REACTIONS (10)
  - Dry eye [Unknown]
  - Lumbar spinal stenosis [Unknown]
  - Dry mouth [Unknown]
  - Oedema [Recovering/Resolving]
  - Oedema peripheral [Not Recovered/Not Resolved]
  - Intervertebral disc protrusion [Unknown]
  - Deep vein thrombosis [Recovering/Resolving]
  - Fluid retention [Not Recovered/Not Resolved]
  - Joint swelling [Unknown]
  - Back disorder [Unknown]

NARRATIVE: CASE EVENT DATE: 20140505
